FAERS Safety Report 6022153-4 (Version None)
Quarter: 2008Q4

REPORT INFORMATION
  Report Type: 
  Country: None (occurrence: None)
  Receive Date: 20081229
  Receipt Date: 20081204
  Transmission Date: 20090506
  Serious: No
  Sender: FDA-Public Use
  Company Number: US-B.I. PHARMACEUTICALS,INC./RIDGEFIELD-2008-BP-18284BP

PATIENT

DRUGS (2)
  1. VIRAMUNE [Suspect]
     Indication: HIV INFECTION CDC GROUP IV SUBGROUP A
     Dates: start: 20080601
  2. TRUVADA [Suspect]
     Indication: HIV INFECTION CDC GROUP IV SUBGROUP A
     Dates: start: 20080601

REACTIONS (5)
  - ABDOMINAL PAIN [None]
  - ARTHRALGIA [None]
  - DIZZINESS [None]
  - PAIN IN EXTREMITY [None]
  - VOMITING [None]
